FAERS Safety Report 12573873 (Version 2)
Quarter: 2016Q3

REPORT INFORMATION
  Report Type: Spontaneous
  Country: US (occurrence: US)
  Receive Date: 20160720
  Receipt Date: 20160802
  Transmission Date: 20161109
  Serious: Yes (Other)
  Sender: FDA-Public Use
  Company Number: US-PFIZER INC-2016261158

PATIENT
  Age: 24 Year
  Sex: Female

DRUGS (5)
  1. CYCLOPHOSPHAMIDE. [Suspect]
     Active Substance: CYCLOPHOSPHAMIDE
     Indication: BREAST CANCER STAGE II
     Dosage: 60 MG/M2, DAILY
     Route: 048
  2. VINBLASTINE [Suspect]
     Active Substance: VINBLASTINE
     Indication: BREAST CANCER STAGE II
     Dosage: 1.2 MG/M2, WEEKLY, (GIVEN FOR 4 WEEKS DURING RADIATION THERAPY)
     Route: 042
  3. FLUOROURACIL. [Suspect]
     Active Substance: FLUOROURACIL
     Indication: BREAST CANCER STAGE II
     Dosage: 300 MG/M2, WEEKLY, (GIVEN FOR 4 WEEKS DURING RADIATION THERAPY)
     Route: 042
  4. DEXAMETHASONE. [Concomitant]
     Active Substance: DEXAMETHASONE
     Indication: NAUSEA
     Dosage: 10 MG, WEEKLY, (BEFORE THE IV CHEMOTHERAPY)
     Route: 042
  5. DOXORUBICIN HCL [Suspect]
     Active Substance: DOXORUBICIN HYDROCHLORIDE
     Indication: BREAST CANCER STAGE II
     Dosage: 15 MG/M2, WEEKLY
     Route: 042

REACTIONS (2)
  - Pneumocystis jirovecii pneumonia [Unknown]
  - Lymphopenia [Unknown]
